FAERS Safety Report 13933486 (Version 2)
Quarter: 2017Q4

REPORT INFORMATION
  Report Type: Spontaneous
  Country: US (occurrence: US)
  Receive Date: 20170904
  Receipt Date: 20171017
  Transmission Date: 20180320
  Serious: No
  Sender: FDA-Public Use
  Company Number: US-009507513-1708USA011187

PATIENT

DRUGS (8)
  1. INTRON A [Suspect]
     Active Substance: INTERFERON ALFA-2B
     Indication: BLADDER CANCER
     Dosage: 50 MILLION UNITS (MU), ONCE WEEKLY
     Route: 043
  2. PROLEUKIN [Suspect]
     Active Substance: ALDESLEUKIN
     Indication: BLADDER CANCER
     Dosage: 22 MU, ONCE WEEKLY
     Route: 043
  3. LEUKINE [Suspect]
     Active Substance: SARGRAMOSTIM
     Indication: BLADDER CANCER
     Dosage: 250 MICROGRAM, QW
     Route: 058
  4. TICE BCG [Suspect]
     Active Substance: BACILLUS CALMETTE-GUERIN SUBSTRAIN TICE LIVE ANTIGEN
     Indication: BLADDER CANCER
     Dosage: ONE-THIRD DOSE IN 50 ML OF SALINE, ONCE WEEKLY
     Route: 043
  5. TICE BCG [Suspect]
     Active Substance: BACILLUS CALMETTE-GUERIN SUBSTRAIN TICE LIVE ANTIGEN
     Dosage: ONE-THIRD DOSE IN 50 ML OF SALINE, ONCE WEEKLY
     Route: 043
  6. INTRON A [Suspect]
     Active Substance: INTERFERON ALFA-2B
     Dosage: 50 MILLION UNITS (MU), ONCE WEEKLY
     Route: 043
  7. PROLEUKIN [Suspect]
     Active Substance: ALDESLEUKIN
     Dosage: 22 MU, ONCE WEEKLY
     Route: 043
  8. LEUKINE [Suspect]
     Active Substance: SARGRAMOSTIM
     Dosage: 250 MICROGRAM, QW
     Route: 058

REACTIONS (1)
  - Urinary tract infection [Unknown]
